FAERS Safety Report 10473143 (Version 4)
Quarter: 2016Q4

REPORT INFORMATION
  Report Type: Spontaneous
  Country: US (occurrence: US)
  Receive Date: 20140924
  Receipt Date: 20161010
  Transmission Date: 20170206
  Serious: Yes (Other)
  Sender: FDA-Public Use
  Company Number: US-SA-2014SA123717

PATIENT
  Age: 65 Year
  Sex: Female

DRUGS (1)
  1. AUBAGIO [Suspect]
     Active Substance: TERIFLUNOMIDE
     Indication: MULTIPLE SCLEROSIS
     Route: 048
     Dates: start: 20140809

REACTIONS (5)
  - Pneumonia [Unknown]
  - Skin disorder [Unknown]
  - Fatigue [Unknown]
  - Pruritus [Unknown]
  - Eye disorder [Unknown]

NARRATIVE: CASE EVENT DATE: 201506
